FAERS Safety Report 7459763-3 (Version None)
Quarter: 2011Q2

REPORT INFORMATION
  Report Type: 
  Country: None (occurrence: None)
  Receive Date: 20110505
  Receipt Date: 20110420
  Transmission Date: 20111010
  Serious: Yes (Hospitalization, Other)
  Sender: FDA-Public Use
  Company Number: FR-JNJFOC-20110410547

PATIENT
  Age: 79 Year
  Sex: Female

DRUGS (5)
  1. TERCIAN [Suspect]
     Indication: PRODUCT USED FOR UNKNOWN INDICATION
     Route: 048
     Dates: start: 20100701, end: 20100801
  2. ZOLPIDEM [Concomitant]
  3. EQUANIL [Concomitant]
  4. RISPERDAL [Suspect]
     Indication: PRODUCT USED FOR UNKNOWN INDICATION
     Route: 048
     Dates: end: 20100701
  5. SEROPLEX [Concomitant]

REACTIONS (4)
  - RETINOPATHY [None]
  - DYSKINESIA [None]
  - DIABETES MELLITUS [None]
  - EXTRAPYRAMIDAL DISORDER [None]
